FAERS Safety Report 10234697 (Version 1)
Quarter: 2014Q2

REPORT INFORMATION
  Report Type: Spontaneous
  Country: US (occurrence: US)
  Receive Date: 20140613
  Receipt Date: 20140613
  Transmission Date: 20141212
  Serious: Yes (Other)
  Sender: FDA-Public Use
  Company Number: US-BEH-2014043058

PATIENT
  Age: 53 Year
  Sex: Male

DRUGS (1)
  1. INTRAVENOUS IMMUNOGLOBULIN G [Suspect]
     Indication: ANTI-VGCC ANTIBODY POSITIVE

REACTIONS (1)
  - Meningitis aseptic [Unknown]
